FAERS Safety Report 12257777 (Version 1)
Quarter: 2016Q2

REPORT INFORMATION
  Report Type: Spontaneous
  Country: US (occurrence: US)
  Receive Date: 20160412
  Receipt Date: 20160412
  Transmission Date: 20160815
  Serious: No
  Sender: FDA-Public Use
  Company Number: US-ELI_LILLY_AND_COMPANY-US201603009264

PATIENT
  Sex: Male

DRUGS (2)
  1. CIALIS [Suspect]
     Active Substance: TADALAFIL
     Indication: ERECTILE DYSFUNCTION
     Dosage: 5 MG, QD
     Route: 065
  2. CIALIS [Suspect]
     Active Substance: TADALAFIL
     Dosage: 10 MG, QD
     Route: 065

REACTIONS (2)
  - Muscle spasms [Unknown]
  - Incorrect dose administered [Not Recovered/Not Resolved]
